FAERS Safety Report 7421907-7 (Version None)
Quarter: 2011Q2

REPORT INFORMATION
  Report Type: 
  Country: None (occurrence: None)
  Receive Date: 20110418
  Receipt Date: 20110405
  Transmission Date: 20111010
  Serious: Yes (Hospitalization)
  Sender: FDA-Public Use
  Company Number: FR-ELI_LILLY_AND_COMPANY-FR201104001700

PATIENT
  Age: 34 Year
  Sex: Male

DRUGS (2)
  1. XANAX [Concomitant]
     Dosage: UNK
     Route: 048
     Dates: start: 20110211, end: 20110226
  2. CYMBALTA [Suspect]
     Dosage: UNK, UNKNOWN
     Route: 048
     Dates: start: 20110211, end: 20110226

REACTIONS (1)
  - PANCREATITIS ACUTE [None]
